FAERS Safety Report 4303708-1 (Version None)
Quarter: 2004Q1

REPORT INFORMATION
  Report Type: 
  Country: None (occurrence: None)
  Receive Date: 20040223
  Receipt Date: 20040205
  Transmission Date: 20041129
  Serious: Yes (Other)
  Sender: FDA-Public Use
  Company Number: 192154

PATIENT
  Sex: Female

DRUGS (1)
  1. AVONEX [Suspect]
     Indication: MULTIPLE SCLEROSIS
     Dates: start: 20010522

REACTIONS (5)
  - CEREBROVASCULAR ACCIDENT [None]
  - CRYING [None]
  - MEDICATION ERROR [None]
  - NASAL CONGESTION [None]
  - UNEVALUABLE EVENT [None]
